FAERS Safety Report 13300325 (Version 1)
Quarter: 2017Q1

REPORT INFORMATION
  Report Type: Report from Study
  Country: FR (occurrence: FR)
  Receive Date: 20170307
  Receipt Date: 20170307
  Transmission Date: 20170428
  Serious: Yes (Death, Life-Threatening, Hospitalization, Other)
  Sender: FDA-Public Use
  Company Number: FR-BAXTER-2016BAX060700

PATIENT
  Age: 80 Year
  Sex: Female

DRUGS (11)
  1. PARACETAMOL [Concomitant]
     Active Substance: ACETAMINOPHEN
     Indication: PRODUCT USED FOR UNKNOWN INDICATION
     Dosage: UNKNOWN FORMULATION
     Route: 042
  2. NAVELBINE [Suspect]
     Active Substance: VINORELBINE TARTRATE
     Dosage: CYCLE 2, DAY 36
     Route: 048
     Dates: start: 20161023
  3. NAVELBINE [Suspect]
     Active Substance: VINORELBINE TARTRATE
     Dosage: REGIMEN #2
     Route: 048
     Dates: start: 20161025
  4. PRIMPERAN [Concomitant]
     Active Substance: METOCLOPRAMIDE HYDROCHLORIDE
     Indication: PRODUCT USED FOR UNKNOWN INDICATION
     Dosage: 1 AMPOULE IF VOMITING
     Route: 048
  5. NAVELBINE [Suspect]
     Active Substance: VINORELBINE TARTRATE
     Dosage: CYCLE 2, DAY 44, REGIMEN #3
     Route: 048
     Dates: start: 20161101
  6. TAHOR [Concomitant]
     Active Substance: ATORVASTATIN CALCIUM
     Indication: PRODUCT USED FOR UNKNOWN INDICATION
     Dosage: UNKNOWN FORMULATION, 1 AT NIGHT
     Route: 048
  7. NAVELBINE [Suspect]
     Active Substance: VINORELBINE TARTRATE
     Indication: BREAST CANCER METASTATIC
     Route: 048
     Dates: start: 20160919
  8. KARDEGIC [Concomitant]
     Active Substance: ASPIRIN LYSINE
     Indication: PRODUCT USED FOR UNKNOWN INDICATION
     Dosage: UNKNOWN FORMULATION, ONE AT MIDDAY
     Route: 048
  9. CHLORURE DE SODIUM 0.9% VIAFLO, SOLUTION POUR PERFUSION [Suspect]
     Active Substance: SODIUM CHLORIDE
     Indication: PRODUCT USED FOR UNKNOWN INDICATION
     Dosage: 9/1500 ML, 1 HOUR IN THE UNIT THEN 1L/DAY
     Route: 042
  10. CALCIPARINE [Concomitant]
     Active Substance: HEPARIN CALCIUM
     Indication: PRODUCT USED FOR UNKNOWN INDICATION
     Dosage: UNKNOWN FORMULATION, 0.2 (UNITS NOT SPECIFIED) (BECAUSE CLEARANCE AT 30ML/MIN
     Route: 042
  11. XELODA [Concomitant]
     Active Substance: CAPECITABINE
     Indication: PRODUCT USED FOR UNKNOWN INDICATION
     Route: 065

REACTIONS (12)
  - Septic shock [Fatal]
  - Fall [Unknown]
  - Lung disorder [Unknown]
  - Hepatocellular injury [Unknown]
  - Malignant peritoneal neoplasm [Unknown]
  - Urinary tract infection [Unknown]
  - Febrile bone marrow aplasia [Recovered/Resolved]
  - Metastases to bone [Unknown]
  - Pneumobilia [Unknown]
  - Head injury [Fatal]
  - Neutropenia [Unknown]
  - Pyelonephritis [Recovered/Resolved]

NARRATIVE: CASE EVENT DATE: 20161023
